FAERS Safety Report 10492508 (Version 1)
Quarter: 2014Q4

REPORT INFORMATION
  Report Type: Spontaneous
  Country: US (occurrence: US)
  Receive Date: 20141002
  Receipt Date: 20141002
  Transmission Date: 20150528
  Serious: No
  Sender: FDA-Public Use
  Company Number: US-GLAXOSMITHKLINE-A1071924A

PATIENT
  Sex: Female

DRUGS (9)
  1. SIMVASTATIN. [Concomitant]
     Active Substance: SIMVASTATIN
  2. METOPROLOL [Concomitant]
     Active Substance: METOPROLOL
  3. DIAZEPAM. [Concomitant]
     Active Substance: DIAZEPAM
  4. NEXIUM [Concomitant]
     Active Substance: ESOMEPRAZOLE MAGNESIUM
  5. PREMARIN [Concomitant]
     Active Substance: ESTROGENS, CONJUGATED
  6. LEVOTHYROXINE [Concomitant]
     Active Substance: LEVOTHYROXINE
  7. ECOTRIN [Concomitant]
     Active Substance: ASPIRIN
  8. ADVAIR HFA [Suspect]
     Active Substance: FLUTICASONE PROPIONATE\SALMETEROL XINAFOATE
     Indication: BRONCHITIS
     Dosage: 1PUFF TWICE PER DAY
     Route: 055
     Dates: start: 201310
  9. LOSARTAN [Concomitant]
     Active Substance: LOSARTAN

REACTIONS (3)
  - Oral candidiasis [Not Recovered/Not Resolved]
  - Oropharyngeal pain [Unknown]
  - Oropharyngeal candidiasis [Unknown]
